FAERS Safety Report 10905463 (Version 3)
Quarter: 2015Q2

REPORT INFORMATION
  Report Type: Report from Study
  Country: GT (occurrence: GT)
  Receive Date: 20150311
  Receipt Date: 20150423
  Transmission Date: 20150821
  Serious: Yes (Other)
  Sender: FDA-Public Use
  Company Number: PHHY2015GT014132

PATIENT
  Age: 55 Year
  Sex: Male
  Weight: 29 kg

DRUGS (3)
  1. VALPAKINE [Concomitant]
     Active Substance: VALPROATE SODIUM
     Indication: PRODUCT USED FOR UNKNOWN INDICATION
     Dosage: 1 DF, Q8H
     Route: 048
  2. RANITIDINE [Concomitant]
     Active Substance: RANITIDINE\RANITIDINE HYDROCHLORIDE
     Indication: PRODUCT USED FOR UNKNOWN INDICATION
     Dosage: 300 MG, QD
     Route: 048
  3. GILENYA [Suspect]
     Active Substance: FINGOLIMOD HYDROCHLORIDE
     Indication: MULTIPLE SCLEROSIS
     Dosage: 0.5 MG, QD
     Route: 048
     Dates: start: 20141014

REACTIONS (9)
  - Peripheral swelling [Unknown]
  - Influenza [Unknown]
  - Myalgia [Recovered/Resolved]
  - Pain [Unknown]
  - Chikungunya virus infection [Unknown]
  - Pyrexia [Recovered/Resolved]
  - Sleep disorder [Unknown]
  - Arthralgia [Unknown]
  - Expired product administered [Unknown]

NARRATIVE: CASE EVENT DATE: 20141014
